FAERS Safety Report 5393377-4 (Version None)
Quarter: 2007Q3

REPORT INFORMATION
  Report Type: 
  Country: None (occurrence: None)
  Receive Date: 20070723
  Receipt Date: 20070717
  Transmission Date: 20080115
  Serious: Yes (Death)
  Sender: FDA-Public Use
  Company Number: PHFR2007GB01502

PATIENT
  Age: 29 Year
  Sex: Female

DRUGS (3)
  1. CLOZARIL [Suspect]
     Indication: SCHIZOPHRENIA
     Dosage: 600MG DAILY
     Route: 048
     Dates: start: 20010907
  2. CLOZARIL [Suspect]
     Dosage: OVERDOSE
     Route: 048
  3. ACETAMINOPHEN [Suspect]
     Dosage: OVERDOSE
     Route: 048

REACTIONS (1)
  - OVERDOSE [None]
